FAERS Safety Report 11229463 (Version 1)
Quarter: 2015Q2

REPORT INFORMATION
  Report Type: Spontaneous
  Country: US (occurrence: US)
  Receive Date: 20150630
  Receipt Date: 20150630
  Transmission Date: 20150821
  Serious: Yes (Other)
  Sender: FDA-Public Use
  Company Number: US-SHIRE-US201506453

PATIENT
  Age: 15 Year
  Sex: Male
  Weight: 77.3 kg

DRUGS (5)
  1. FLAGYL [Concomitant]
     Active Substance: METRONIDAZOLE\METRONIDAZOLE HYDROCHLORIDE
     Indication: CONDITION AGGRAVATED
     Dosage: 500 MG, 1X/DAY:QD
     Route: 048
     Dates: start: 20141031, end: 201502
  2. FLAGYL [Concomitant]
     Active Substance: METRONIDAZOLE\METRONIDAZOLE HYDROCHLORIDE
     Indication: CLOSTRIDIUM DIFFICILE INFECTION
  3. CORTENEMA [Concomitant]
     Active Substance: HYDROCORTISONE
     Indication: PRODUCT USED FOR UNKNOWN INDICATION
     Dosage: 30 MG, AS REQ^D (AT NIGHT)
     Route: 065
     Dates: start: 201501
  4. PREDNISONE. [Concomitant]
     Active Substance: PREDNISONE
     Indication: PRODUCT USED FOR UNKNOWN INDICATION
     Dosage: 5 MG, 1X/DAY:QD
     Route: 048
     Dates: start: 201505
  5. LIALDA [Suspect]
     Active Substance: MESALAMINE
     Indication: COLITIS ULCERATIVE
     Dosage: 1.2 G (ONE), 1X/DAY:QD
     Route: 048
     Dates: start: 201502, end: 201506

REACTIONS (3)
  - Product use issue [Recovered/Resolved]
  - Drug dose omission [Unknown]
  - Haematochezia [Unknown]

NARRATIVE: CASE EVENT DATE: 201502
